FAERS Safety Report 12282414 (Version 2)
Quarter: 2016Q3

REPORT INFORMATION
  Report Type: Report from Study
  Country: JP (occurrence: JP)
  Receive Date: 20160419
  Receipt Date: 20160708
  Transmission Date: 20161109
  Serious: Yes (Death)
  Sender: FDA-Public Use
  Company Number: JP-EISAI MEDICAL RESEARCH-EC-2016-016215

PATIENT
  Age: 39 Year
  Sex: Female
  Weight: 72 kg

DRUGS (10)
  1. OXINORM [Concomitant]
     Active Substance: OXYCODONE HYDROCHLORIDE
  2. FAMOTIDINE. [Concomitant]
     Active Substance: FAMOTIDINE
  3. RANMARK [Concomitant]
     Active Substance: DENOSUMAB
  4. OXYCONTIN [Concomitant]
     Active Substance: OXYCODONE HYDROCHLORIDE
  5. REBAMIPIDE [Concomitant]
     Active Substance: REBAMIPIDE
  6. MAGNESIUM OXIDE. [Concomitant]
     Active Substance: MAGNESIUM OXIDE
  7. HALAVEN [Suspect]
     Active Substance: ERIBULIN MESYLATE
     Route: 041
     Dates: start: 20150910, end: 20151015
  8. HALAVEN [Suspect]
     Active Substance: ERIBULIN MESYLATE
     Indication: BREAST CANCER RECURRENT
     Route: 041
     Dates: start: 20150820, end: 20150820
  9. LOXOPROFEN [Concomitant]
     Active Substance: LOXOPROFEN
  10. DENOTAS [Concomitant]
     Active Substance: CALCIUM CARBONATE\CHOLECALCIFEROL\MAGNESIUM CARBONATE

REACTIONS (2)
  - Malignant neoplasm progression [Fatal]
  - Hepatic haemorrhage [Fatal]

NARRATIVE: CASE EVENT DATE: 20151029
